FAERS Safety Report 8232801-6 (Version None)
Quarter: 2012Q1

REPORT INFORMATION
  Report Type: 
  Country: None (occurrence: None)
  Receive Date: 20120323
  Receipt Date: 20120314
  Transmission Date: 20120608
  Serious: Yes (Hospitalization)
  Sender: FDA-Public Use
  Company Number: US-RB-024315-11

PATIENT
  Age: 47 Year
  Sex: Male

DRUGS (10)
  1. SUBOXONE [Suspect]
     Route: 060
  2. LISINOPRIL [Suspect]
     Indication: HYPERTENSION
     Route: 048
     Dates: start: 20110701
  3. THORAZINE [Concomitant]
     Indication: NAUSEA
     Dosage: 1 TABLET BY MOUTH
     Route: 048
     Dates: start: 20100101
  4. THORAZINE [Concomitant]
     Dosage: 1 TABLET BY MOUTH
     Route: 048
     Dates: start: 20100101
  5. SUBOXONE [Suspect]
     Indication: DRUG DEPENDENCE
     Dosage: SUBLINGUAL FILM / PRESCRIBED 16 MG BUT CUTTING DOSE
     Route: 060
     Dates: start: 20110328
  6. SUBOXONE [Suspect]
     Indication: DRUG DEPENDENCE
     Route: 060
  7. SUBOXONE [Suspect]
     Route: 060
     Dates: start: 20110101
  8. CLONIDINE [Concomitant]
     Indication: HYPERTENSION
     Dosage: UNKNOWN DOSAGE DETAILS
     Route: 065
  9. SUBOXONE [Suspect]
     Route: 060
     Dates: start: 20090101
  10. LOPRESSOR [Concomitant]
     Indication: HYPERTENSION
     Dosage: DOSING INFORMATION UNKNOWN
     Route: 065

REACTIONS (15)
  - MUCOSAL ATROPHY [None]
  - INTENTIONAL OVERDOSE [None]
  - BLOOD PRESSURE INCREASED [None]
  - WEIGHT DECREASED [None]
  - DRUG INEFFECTIVE [None]
  - BUTTERFLY RASH [None]
  - SOMNOLENCE [None]
  - NAUSEA [None]
  - ARTHROPATHY [None]
  - CONDITION AGGRAVATED [None]
  - HEART RATE INCREASED [None]
  - HELICOBACTER INFECTION [None]
  - INCREASED APPETITE [None]
  - INTENTIONAL DRUG MISUSE [None]
  - ABDOMINAL DISTENSION [None]
